FAERS Safety Report 9097937 (Version 1)
Quarter: 2013Q1

REPORT INFORMATION
  Report Type: Spontaneous
  Country: US (occurrence: US)
  Receive Date: 20130212
  Receipt Date: 20130212
  Transmission Date: 20140127
  Serious: Yes (Other)
  Sender: FDA-Public Use
  Company Number: US-PFIZER INC-2013051862

PATIENT
  Age: 77 Year
  Sex: Female
  Weight: 68.03 kg

DRUGS (8)
  1. LYRICA [Suspect]
     Indication: NEUROPATHY PERIPHERAL
     Dosage: 25 MG, 3X/DAY
     Dates: start: 2012
  2. LYRICA [Suspect]
     Dosage: 25 MG, 2X/DAY
     Dates: end: 201211
  3. LISINOPRIL [Suspect]
     Indication: HYPERTENSION
     Dosage: 40 MG/DAY
  4. DILTIAZEM [Suspect]
     Indication: HYPERTENSION
     Dosage: 240 MG/DAY
  5. LIPITOR [Suspect]
     Indication: BLOOD CHOLESTEROL INCREASED
     Dosage: UNK
  6. METOPROLOL SUCCINATE [Suspect]
     Indication: HYPERTENSION
     Dosage: 50 MG/DAY
     Dates: start: 201301
  7. GLUCOSAMINE [Concomitant]
     Indication: SPONDYLITIS
     Dosage: 1000 MG, 2X/DAY
  8. MULTIVITAMINS [Concomitant]
     Dosage: UNK

REACTIONS (10)
  - Urinary tract infection [Unknown]
  - Hypertension [Unknown]
  - Cystitis [Recovered/Resolved]
  - Blood sodium decreased [Unknown]
  - Scratch [Unknown]
  - Skin disorder [Unknown]
  - Insomnia [Unknown]
  - Pain in extremity [Unknown]
  - Arthralgia [Unknown]
  - Drug ineffective [Unknown]
